FAERS Safety Report 15796859 (Version 3)
Quarter: 2019Q1

REPORT INFORMATION
  Report Type: Spontaneous
  Country: AU (occurrence: AU)
  Receive Date: 20190108
  Receipt Date: 20190328
  Transmission Date: 20190417
  Serious: Yes (Hospitalization)
  Sender: FDA-Public Use
  Company Number: AU-ROCHE-2241084

PATIENT
  Age: 7 Year
  Sex: Male
  Weight: 23 kg

DRUGS (1)
  1. RIVOTRIL [Suspect]
     Active Substance: CLONAZEPAM
     Indication: EPILEPSY
     Dosage: 3 ML ( 3 DROPS )
     Route: 065

REACTIONS (4)
  - Bradycardia [Unknown]
  - Somnolence [Unknown]
  - Ataxia [Unknown]
  - Overdose [Unknown]
